FAERS Safety Report 15201029 (Version 6)
Quarter: 2018Q3

REPORT INFORMATION
  Report Type: Spontaneous
  Country: FR (occurrence: FR)
  Receive Date: 20180726
  Receipt Date: 20180918
  Transmission Date: 20181010
  Serious: Yes (Death, Life-Threatening, Hospitalization, Other)
  Sender: FDA-Public Use
  Company Number: FR-AUROBINDO-AUR-APL-2018-037342

PATIENT
  Age: 80 Year
  Sex: Male

DRUGS (17)
  1. VORICONAZOLE. [Interacting]
     Active Substance: VORICONAZOLE
     Dosage: ON DAY 8: 400 MG MORNING (QAM) / 200 MG NIGHT (QHS) ()
     Route: 065
  2. VORICONAZOLE. [Interacting]
     Active Substance: VORICONAZOLE
     Dosage: ON DAY 9: ADMINISTERED ONLY IN THE MORNING (QAM)200 MG, Q.H.S.
     Route: 065
  3. AZITHROMYCIN ANHYDROUS. [Interacting]
     Active Substance: AZITHROMYCIN ANHYDROUS
     Dosage: 500 MILLIGRAM, ONCE A DAY (ON DAY 2)
     Route: 065
  4. PONATINIB [Interacting]
     Active Substance: PONATINIB
     Indication: ACUTE MYELOID LEUKAEMIA (IN REMISSION)
  5. PONATINIB [Interacting]
     Active Substance: PONATINIB
     Indication: ACUTE MYELOID LEUKAEMIA
  6. VORICONAZOLE. [Interacting]
     Active Substance: VORICONAZOLE
     Dosage: 400MG IN THE MORNING AND 200MG AT NIGHT
  7. VORICONAZOLE. [Interacting]
     Active Substance: VORICONAZOLE
     Dosage: ON DAY 9: ADMINISTERED ONLY IN THE MORNING (QAM)
     Route: 065
  8. VORICONAZOLE. [Interacting]
     Active Substance: VORICONAZOLE
     Dosage: FROM DAY 4 TO DAY 7 (MORNING AND NIGHT)
     Route: 065
  9. VORICONAZOLE. [Interacting]
     Active Substance: VORICONAZOLE
     Dosage: ON DAY 3
     Route: 065
  10. VORICONAZOLE. [Interacting]
     Active Substance: VORICONAZOLE
     Dosage: FROM DAY 4 TO DAY 7 (MORNING AND NIGHT)
     Route: 065
  11. AZITHROMYCIN ANHYDROUS. [Interacting]
     Active Substance: AZITHROMYCIN ANHYDROUS
     Dosage: FROM DAY 3 TO DAY 9
     Route: 065
  12. VORICONAZOLE. [Interacting]
     Active Substance: VORICONAZOLE
     Dosage: ON DAY 3, 400 MG, BID (MORNING AND NIGHT)
     Route: 065
  13. VORICONAZOLE. [Interacting]
     Active Substance: VORICONAZOLE
     Dosage: ON DAY 8: 400 MG MORNING (QAM) / 200 MG NIGHT (QHS) ()
     Route: 065
  14. VORICONAZOLE. [Interacting]
     Active Substance: VORICONAZOLE
     Indication: BRONCHOPULMONARY ASPERGILLOSIS
     Dosage: 400 MILLIGRAM, ONCE A DAY (400 MG, BID (MORNING AND NIGHT) )
     Route: 065
  15. PONATINIB [Interacting]
     Active Substance: PONATINIB
     Indication: ACUTE MYELOID LEUKAEMIA RECURRENT
     Dosage: (45 MG/DAY AT NOON) 45 MILLIGRAM, ONCE A DAY
     Route: 065
  16. AZITHROMYCIN ANHYDROUS. [Suspect]
     Active Substance: AZITHROMYCIN ANHYDROUS
     Indication: RESPIRATORY TRACT INFECTION
     Dosage: 250 MILLIGRAM, ONCE A DAY (250 MILLIGRAM FROM DAY 3 TO DAY 9)
     Route: 065
  17. VORICONAZOLE. [Interacting]
     Active Substance: VORICONAZOLE
     Dosage: 200 MILLIGRAM, ONCE A DAY (ON DAY 9: ADMINISTERED ONLY IN THE MORNING)
     Route: 065

REACTIONS (7)
  - Drug interaction [Fatal]
  - Drug level above therapeutic [Fatal]
  - Off label use [Unknown]
  - Hepatotoxicity [Fatal]
  - Hepatic failure [Fatal]
  - Acute hepatic failure [Fatal]
  - Hepatocellular injury [Fatal]
